FAERS Safety Report 14815306 (Version 2)
Quarter: 2018Q2

REPORT INFORMATION
  Report Type: Spontaneous
  Country: BR (occurrence: BR)
  Receive Date: 20180426
  Receipt Date: 20180503
  Transmission Date: 20180711
  Serious: Yes (Other)
  Sender: FDA-Public Use
  Company Number: BR-PFIZER INC-2018169142

PATIENT
  Age: 35 Year
  Sex: Male

DRUGS (8)
  1. PROMETHAZINE HCL [Suspect]
     Active Substance: PROMETHAZINE HYDROCHLORIDE
     Dosage: 25 MG, UNK
     Dates: start: 201710
  2. CHLORPROMAZINE. [Suspect]
     Active Substance: CHLORPROMAZINE
     Dosage: 100 MG, UNK
     Dates: start: 201710
  3. AMITRIPTYLINE [Suspect]
     Active Substance: AMITRIPTYLINE
     Dosage: 50 MG, UNK
     Dates: start: 201710
  4. CLONAZEPAM. [Suspect]
     Active Substance: CLONAZEPAM
     Dosage: 60 DROPS
     Dates: start: 201710
  5. BUCLIZINE [Suspect]
     Active Substance: BUCLIZINE
     Dosage: 25 MG, UNK
     Dates: start: 201710
  6. FLUOXETINE HCL [Suspect]
     Active Substance: FLUOXETINE HYDROCHLORIDE
     Dosage: 40 MG, UNK
     Dates: start: 201710
  7. NORTRIPTYLINE [Suspect]
     Active Substance: NORTRIPTYLINE
     Dosage: 50 MG, UNK
     Dates: start: 201710
  8. OMEPRAZOLE. [Suspect]
     Active Substance: OMEPRAZOLE
     Dosage: 40 MG, UNK
     Dates: start: 201710

REACTIONS (3)
  - Weight decreased [Unknown]
  - Suicide attempt [Unknown]
  - Disorientation [Unknown]

NARRATIVE: CASE EVENT DATE: 2017
